FAERS Safety Report 19834550 (Version 1)
Quarter: 2021Q3

REPORT INFORMATION
  Report Type: Report from Study
  Country: CN (occurrence: CN)
  Receive Date: 20210915
  Receipt Date: 20210915
  Transmission Date: 20211014
  Serious: Yes (Other)
  Sender: FDA-Public Use
  Company Number: CN-PFIZER INC-202101169691

PATIENT
  Age: 12 Year

DRUGS (4)
  1. ADRIAMYCIN [Suspect]
     Active Substance: DOXORUBICIN HYDROCHLORIDE
     Indication: OSTEOSARCOMA
     Dosage: 30 MG/M2, DAILY, FOR 2 DAYS
     Route: 042
  2. CISPLATIN. [Suspect]
     Active Substance: CISPLATIN
     Indication: OSTEOSARCOMA
     Dosage: 120 MG/M2, DAILY, OVER 3?6H
  3. METHOTREXATE SODIUM. [Suspect]
     Active Substance: METHOTREXATE SODIUM
     Indication: OSTEOSARCOMA
     Dosage: 10 G/M2 DAILY FOR ONE DAY
     Route: 041
  4. VINCRISTINE [Suspect]
     Active Substance: VINCRISTINE
     Indication: OSTEOSARCOMA
     Dosage: 2 MG, DAILY, FOR ONE DAY
     Route: 042

REACTIONS (2)
  - Palpitations [Unknown]
  - Chest pain [Unknown]
